FAERS Safety Report 25322545 (Version 3)
Quarter: 2025Q2

REPORT INFORMATION
  Report Type: Spontaneous
  Country: JP (occurrence: JP)
  Receive Date: 20250516
  Receipt Date: 20250530
  Transmission Date: 20250716
  Serious: Yes (Hospitalization, Other)
  Sender: GILEAD
  Company Number: JP-GILEAD-2025-0705312

PATIENT
  Age: 81 Year
  Sex: Female
  Weight: 36.3 kg

DRUGS (2)
  1. TRODELVY [Suspect]
     Active Substance: SACITUZUMAB GOVITECAN-HZIY
     Indication: Triple negative breast cancer
     Route: 065
     Dates: start: 20250212, end: 20250520
  2. BEVACIZUMAB [Suspect]
     Active Substance: BEVACIZUMAB
     Indication: Product used for unknown indication
     Route: 065
     Dates: start: 202311, end: 202406

REACTIONS (6)
  - Metastases to central nervous system [Not Recovered/Not Resolved]
  - Metastases to bone [Not Recovered/Not Resolved]
  - Haemorrhagic hepatic cyst [Recovering/Resolving]
  - Metastases to lung [Unknown]
  - Metastases to liver [Unknown]
  - Malaise [Unknown]

NARRATIVE: CASE EVENT DATE: 20250101
